FAERS Safety Report 11939541 (Version 2)
Quarter: 2016Q1

REPORT INFORMATION
  Report Type: Report from Study
  Country: DE (occurrence: DE)
  Receive Date: 20160122
  Receipt Date: 20160127
  Transmission Date: 20160526
  Serious: Yes (Hospitalization, Disabling, Other)
  Sender: FDA-Public Use
  Company Number: DE-TEVA-610126GER

PATIENT
  Age: 49 Year
  Sex: Female
  Weight: 75 kg

DRUGS (2)
  1. URBASON 250 MG [Concomitant]
     Indication: MULTIPLE SCLEROSIS RELAPSE
     Dates: start: 20060702, end: 20060702
  2. COPAXONE [Suspect]
     Active Substance: GLATIRAMER ACETATE
     Indication: MULTIPLE SCLEROSIS
     Dosage: 20 MILLIGRAM DAILY;
     Dates: start: 20030101

REACTIONS (3)
  - Ischaemic stroke [Recovered/Resolved]
  - Aortic stenosis [Recovered/Resolved]
  - Hemiparesis [Recovered/Resolved with Sequelae]

NARRATIVE: CASE EVENT DATE: 20060706
